FAERS Safety Report 8970207 (Version 2)
Quarter: 2013Q4

REPORT INFORMATION
  Report Type: Spontaneous
  Country: US (occurrence: US)
  Receive Date: 20121218
  Receipt Date: 20131213
  Transmission Date: 20140711
  Serious: No
  Sender: FDA-Public Use
  Company Number: US-GLAXOSMITHKLINE-A0953886A

PATIENT
  Sex: Male

DRUGS (3)
  1. NICORETTE NICOTINE POLACRILEX LOZENGE [Suspect]
     Indication: PRODUCT USED FOR UNKNOWN INDICATION
     Route: 048
  2. COMMIT NICOTINE POLACRILEX LOZENGE [Suspect]
     Route: 002
  3. NICORETTE MINI LOZENGE, 2MG [Suspect]
     Route: 002

REACTIONS (4)
  - Nicotine dependence [Unknown]
  - Superinfection [Unknown]
  - Dental caries [Unknown]
  - Oral infection [Unknown]
